FAERS Safety Report 9206908 (Version 2)
Quarter: 2013Q4

REPORT INFORMATION
  Report Type: Spontaneous
  Country: US (occurrence: US)
  Receive Date: 20130403
  Receipt Date: 20131212
  Transmission Date: 20140711
  Serious: Yes (Other)
  Sender: FDA-Public Use
  Company Number: US-BAYER-2013-041095

PATIENT
  Age: 18 Year
  Sex: Female

DRUGS (5)
  1. YAZ [Suspect]
     Dosage: UNK
     Dates: start: 20080626
  2. YASMIN [Suspect]
     Dosage: UNK
     Dates: start: 20080626
  3. OCELLA [Suspect]
     Dosage: UNK
     Dates: start: 20080626
  4. GIANVI [Suspect]
     Dosage: UNK
     Dates: start: 20080626
  5. WELLBUTRIN XL [Concomitant]
     Indication: DEPRESSION
     Dosage: 150 MG, UNK
     Route: 048
     Dates: start: 20110405

REACTIONS (9)
  - Cholecystitis [None]
  - Deep vein thrombosis [None]
  - Gallbladder injury [None]
  - Injury [None]
  - Pain [None]
  - General physical health deterioration [None]
  - Emotional distress [None]
  - Anxiety [None]
  - Pain [None]
